FAERS Safety Report 6718448-9 (Version None)
Quarter: 2010Q2

REPORT INFORMATION
  Report Type: 
  Country: None (occurrence: None)
  Receive Date: 20100510
  Receipt Date: 20100426
  Transmission Date: 20101027
  Serious: Yes (Other)
  Sender: FDA-Public Use
  Company Number: DE-MYLANLABS-2010S1007317

PATIENT
  Age: 95 Year
  Sex: Female

DRUGS (2)
  1. AMITRIPTLINE HYDROCHLORIDE TAB [Suspect]
     Indication: ANXIETY
     Route: 048
  2. RADEDORM [Suspect]
     Indication: ANXIETY
     Route: 048

REACTIONS (7)
  - DISORIENTATION [None]
  - FATIGUE [None]
  - GAIT DISTURBANCE [None]
  - HYPOTONIA [None]
  - SOMNOLENCE [None]
  - SPEECH DISORDER [None]
  - VISUAL ACUITY REDUCED [None]
